FAERS Safety Report 19679803 (Version 1)
Quarter: 2021Q3

REPORT INFORMATION
  Report Type: Spontaneous
  Country: GB (occurrence: GB)
  Receive Date: 20210810
  Receipt Date: 20210810
  Transmission Date: 20211014
  Serious: Yes (Other)
  Sender: FDA-Public Use
  Company Number: GB-ACCORD-234812

PATIENT
  Age: 45 Year
  Sex: Female
  Weight: 111 kg

DRUGS (2)
  1. RAMIPRIL. [Suspect]
     Active Substance: RAMIPRIL
     Indication: PRODUCT USED FOR UNKNOWN INDICATION
     Dosage: DOSE:2.5
     Dates: start: 20210728
  2. LOSARTAN. [Concomitant]
     Active Substance: LOSARTAN
     Dosage: 1/2 FOR FIRST WEEK AND THEN INCREASE TO 1 TABLET
     Dates: start: 20210707

REACTIONS (2)
  - Cough [Recovered/Resolved]
  - Diplopia [Unknown]

NARRATIVE: CASE EVENT DATE: 20210728
